FAERS Safety Report 7608433-7 (Version None)
Quarter: 2011Q3

REPORT INFORMATION
  Report Type: 
  Country: None (occurrence: None)
  Receive Date: 20110714
  Receipt Date: 20110630
  Transmission Date: 20111222
  Serious: No
  Sender: FDA-Public Use
  Company Number: US-B.I. PHARMACEUTICALS,INC./RIDGEFIELD-2010-BP-13765BP

PATIENT
  Sex: Male

DRUGS (14)
  1. FUROSEMIDE [Concomitant]
  2. VITMAIN D [Concomitant]
  3. NORVASC [Concomitant]
     Indication: HYPERTENSION
     Dosage: 5 MG
  4. BENICAR HCT [Concomitant]
  5. LOVASTATIN [Concomitant]
  6. ASPIRIN [Concomitant]
     Dosage: 81 MG
  7. MULTI-VITAMIN [Concomitant]
  8. PRADAXA [Suspect]
     Indication: ATRIAL FIBRILLATION
     Dosage: 300 MG
     Route: 048
     Dates: start: 20101122, end: 20101124
  9. FISH OIL [Concomitant]
     Dosage: 2400 MG
  10. VITAMIN E [Concomitant]
  11. PRADAXA [Suspect]
     Indication: ATRIAL FLUTTER
     Dosage: 300 MG
     Route: 048
     Dates: start: 20101203, end: 20110110
  12. SOTALOL HCL [Concomitant]
  13. GABAPENTIN [Concomitant]
     Dosage: 1800 MG
  14. KLOR-CON [Concomitant]

REACTIONS (4)
  - DYSPEPSIA [None]
  - DIZZINESS [None]
  - ABDOMINAL DISCOMFORT [None]
  - VERTIGO [None]
